FAERS Safety Report 23378295 (Version 1)
Quarter: 2024Q1

REPORT INFORMATION
  Report Type: Spontaneous
  Country: US (occurrence: US)
  Receive Date: 20240108
  Receipt Date: 20240108
  Transmission Date: 20240409
  Serious: No
  Sender: FDA-Public Use
  Company Number: US-JNJFOC-20240105426

PATIENT
  Age: 43 Year
  Sex: Female

DRUGS (4)
  1. INVEGA SUSTENNA [Interacting]
     Active Substance: PALIPERIDONE PALMITATE
     Indication: Schizoaffective disorder
     Route: 030
  2. INVEGA SUSTENNA [Interacting]
     Active Substance: PALIPERIDONE PALMITATE
  3. INVEGA SUSTENNA [Interacting]
     Active Substance: PALIPERIDONE PALMITATE
  4. LEVOTHYROXINE [Suspect]
     Active Substance: LEVOTHYROXINE
     Indication: Thyroid disorder
     Route: 065

REACTIONS (17)
  - Off label use [Unknown]
  - Drug interaction [Unknown]
  - Middle insomnia [Unknown]
  - Panic attack [Unknown]
  - Feeling abnormal [Unknown]
  - Asthenia [Unknown]
  - Asthenia [Unknown]
  - Haemodynamic instability [Unknown]
  - Feeling of body temperature change [Unknown]
  - Headache [Unknown]
  - Automatism [Unknown]
  - Motor dysfunction [Unknown]
  - Derealisation [Unknown]
  - Thinking abnormal [Unknown]
  - Amnesia [Unknown]
  - Myalgia [Unknown]
  - Cognitive disorder [Unknown]
